FAERS Safety Report 13108740 (Version 1)
Quarter: 2017Q1

REPORT INFORMATION
  Report Type: Spontaneous
  Country: US (occurrence: US)
  Receive Date: 20170112
  Receipt Date: 20170112
  Transmission Date: 20170428
  Serious: No
  Sender: FDA-Public Use
  Company Number: None

PATIENT
  Age: 66 Year
  Sex: Female
  Weight: 58.05 kg

DRUGS (4)
  1. CLINDAMYCIN HCL 300 MG CAPSULE [Suspect]
     Active Substance: CLINDAMYCIN HYDROCHLORIDE
     Indication: POSTOPERATIVE CARE
     Dosage: ?          QUANTITY:28 CAPSULE(S);?
     Route: 048
  2. VITAMIN C [Concomitant]
     Active Substance: ASCORBIC ACID
  3. VITAMIN B COMPLEX WITH C [Concomitant]
     Active Substance: ASCORBIC ACID\CALCIUM PANTOTHENATE\CYANOCOBALAMIN\NIACINAMIDE\PYRIDOXINE HYDROCHLORIDE\RIBOFLAVIN\THIAMINE MONONITRATE
  4. VITAMIN D [Concomitant]
     Active Substance: CHOLECALCIFEROL

REACTIONS (5)
  - Pruritus [None]
  - Dysgeusia [None]
  - Pruritus generalised [None]
  - Somnolence [None]
  - Fatigue [None]

NARRATIVE: CASE EVENT DATE: 20170105
